FAERS Safety Report 7575671 (Version 5)
Quarter: 2013Q1

REPORT INFORMATION
  Report Type: Spontaneous
  Country: US (occurrence: US)
  Receive Date: 20100908
  Receipt Date: 20130329
  Transmission Date: 20140127
  Serious: Yes (Other)
  Sender: FDA-Public Use
  Company Number: US-US-EMD SERONO, INC.-7016230

PATIENT
  Sex: Female
  Weight: 59 kg

DRUGS (1)
  1. REBIF [Suspect]
     Indication: MULTIPLE SCLEROSIS
     Route: 058
     Dates: start: 20030810

REACTIONS (10)
  - Vein disorder [Not Recovered/Not Resolved]
  - Thromboangiitis obliterans [Unknown]
  - Cardiovascular insufficiency [Not Recovered/Not Resolved]
  - Poor peripheral circulation [Not Recovered/Not Resolved]
  - Tinea pedis [Unknown]
  - Hyperkeratosis [Not Recovered/Not Resolved]
  - Pain in extremity [Recovering/Resolving]
  - Multiple sclerosis [Not Recovered/Not Resolved]
  - Gait disturbance [Not Recovered/Not Resolved]
  - Injection site mass [Not Recovered/Not Resolved]
